FAERS Safety Report 9385637 (Version 3)
Quarter: 2014Q1

REPORT INFORMATION
  Report Type: Spontaneous
  Country: US (occurrence: US)
  Receive Date: 20130705
  Receipt Date: 20140313
  Transmission Date: 20141002
  Serious: Yes (Hospitalization)
  Sender: FDA-Public Use
  Company Number: US-B.I. PHARMACEUTICALS,INC./RIDGEFIELD-2013-BI-18909BP

PATIENT
  Age: 66 Year
  Sex: Male
  Weight: 102.06 kg

DRUGS (7)
  1. PRADAXA [Suspect]
     Indication: ATRIAL FIBRILLATION
     Dosage: 300 MG
     Route: 048
     Dates: start: 20120124, end: 20120726
  2. PRADAXA [Suspect]
     Indication: CEREBROVASCULAR ACCIDENT PROPHYLAXIS
  3. CRESTOR [Concomitant]
     Dosage: 10 MG
     Route: 048
     Dates: start: 2000
  4. AMLODIPINE BESYLATE AND BENAZEPRIL HYDROCHLORIDE [Concomitant]
     Route: 048
  5. PANTOPRAZOLE SODIUM [Concomitant]
     Dosage: 40 MG
     Route: 048
     Dates: start: 2002
  6. VIAGRA [Concomitant]
     Route: 048
  7. SOTALOL [Concomitant]
     Dosage: 80 MG
     Route: 048

REACTIONS (3)
  - Cerebral haemorrhage [Recovered/Resolved]
  - Haemorrhagic stroke [Unknown]
  - Respiratory failure [Unknown]
